FAERS Safety Report 12178548 (Version 1)
Quarter: 2016Q1

REPORT INFORMATION
  Report Type: Spontaneous
  Country: CO (occurrence: CO)
  Receive Date: 20160315
  Receipt Date: 20160315
  Transmission Date: 20160526
  Serious: Yes (Death)
  Sender: FDA-Public Use
  Company Number: CO-ROCHE-1725558

PATIENT
  Age: 34 Year
  Sex: Female
  Weight: 120 kg

DRUGS (2)
  1. METALYSE [Suspect]
     Active Substance: TENECTEPLASE
     Indication: PULMONARY EMBOLISM
     Route: 042
  2. METALYSE [Suspect]
     Active Substance: TENECTEPLASE
     Indication: CARDIO-RESPIRATORY ARREST

REACTIONS (2)
  - Off label use [Unknown]
  - Death [Fatal]
